FAERS Safety Report 12305192 (Version 1)
Quarter: 2016Q2

REPORT INFORMATION
  Report Type: Spontaneous
  Country: CN (occurrence: CN)
  Receive Date: 20160426
  Receipt Date: 20160426
  Transmission Date: 20160815
  Serious: Yes (Hospitalization)
  Sender: FDA-Public Use
  Company Number: PHHY2016CN054640

PATIENT
  Age: 81 Year
  Sex: Female
  Weight: 75 kg

DRUGS (3)
  1. MEVALOTIN [Concomitant]
     Active Substance: PRAVASTATIN SODIUM
     Indication: HYPERLIPIDAEMIA
     Dosage: 20 MG, QD
     Route: 048
     Dates: start: 20150702, end: 20151011
  2. TEGRETOL [Suspect]
     Active Substance: CARBAMAZEPINE
     Indication: TRIGEMINAL NEURALGIA
     Dosage: 0.2 G, BID
     Route: 048
     Dates: start: 20150930, end: 20151010
  3. TEGRETOL [Suspect]
     Active Substance: CARBAMAZEPINE
     Dosage: 0.4 G, BID
     Route: 048
     Dates: start: 20151011, end: 20151011

REACTIONS (5)
  - Pain [Recovering/Resolving]
  - Muscular weakness [Recovering/Resolving]
  - Urinary incontinence [Recovering/Resolving]
  - Erythema [Recovering/Resolving]
  - Anal incontinence [Recovered/Resolved]

NARRATIVE: CASE EVENT DATE: 20151011
